FAERS Safety Report 5375706-0 (Version None)
Quarter: 2007Q2

REPORT INFORMATION
  Report Type: 
  Country: None (occurrence: None)
  Receive Date: 20070628
  Receipt Date: 20070621
  Transmission Date: 20071010
  Serious: Yes (Hospitalization)
  Sender: FDA-Public Use
  Company Number: 2007-02979

PATIENT
  Age: 60 Year
  Sex: Male

DRUGS (2)
  1. MORPHINE SULFATE [Suspect]
     Indication: ANALGESIC EFFECT
     Dosage: 20 MG, SINGLE, INTRAVENOUS
     Route: 042
     Dates: start: 20070101, end: 20070101
  2. CO2() [Suspect]
     Indication: HERNIA REPAIR
     Dosage: SINGLE
     Route: 050
     Dates: start: 20070101, end: 20070101

REACTIONS (2)
  - GRAND MAL CONVULSION [None]
  - HYPERCAPNIA [None]
